FAERS Safety Report 4377206-3 (Version None)
Quarter: 2004Q2

REPORT INFORMATION
  Report Type: 
  Country: None (occurrence: None)
  Receive Date: 20040614
  Receipt Date: 20040614
  Transmission Date: 20050107
  Serious: No
  Sender: FDA-Public Use
  Company Number: None

PATIENT
  Age: 53 Year
  Sex: Male
  Weight: 95.2554 kg

DRUGS (1)
  1. BETAMETHASONE [Suspect]
     Indication: TRIGGER FINGER
     Dosage: 2 CC X 1 INTRA-ARTICU
     Route: 013
     Dates: start: 20040513, end: 20040513

REACTIONS (2)
  - INJECTION SITE PAIN [None]
  - INJECTION SITE SWELLING [None]
